FAERS Safety Report 8140600-9 (Version None)
Quarter: 2012Q1

REPORT INFORMATION
  Report Type: 
  Country: None (occurrence: None)
  Receive Date: 20120216
  Receipt Date: 20120209
  Transmission Date: 20120608
  Serious: Yes (Death, Hospitalization)
  Sender: FDA-Public Use
  Company Number: JP-PFIZER INC-2011287185

PATIENT
  Age: 83 Year
  Sex: Male
  Weight: 60 kg

DRUGS (21)
  1. NORVASC [Concomitant]
     Dosage: 10 MG, 1X/DAY
     Route: 048
  2. PURSENNID [Concomitant]
     Dosage: 24 MG, 1X/DAY
  3. CHLOR-TRIMETON [Concomitant]
     Indication: PROPHYLAXIS
     Dosage: 10 MG, 1X/DAY
     Route: 042
     Dates: start: 20110408, end: 20110408
  4. POLYCARBOPHIL CALCIUM [Concomitant]
     Dosage: 1 G, 3X/DAY
     Route: 048
  5. GASCON [Concomitant]
     Dosage: 80 MG, 3X/DAY
     Route: 048
  6. LOXONIN [Concomitant]
     Dosage: UNK
     Route: 062
  7. OXYCONTIN [Concomitant]
     Indication: PAIN
     Dosage: 10 MG, 2X/DAY
     Route: 048
     Dates: start: 20110512, end: 20110529
  8. OXINORM [Concomitant]
     Indication: PAIN
     Dosage: 5 MG, AS NEEDED
     Route: 048
     Dates: start: 20110428
  9. CHLOR-TRIMETON [Concomitant]
     Dosage: 10 MG, 1X/DAY
     Route: 042
     Dates: start: 20110506, end: 20110506
  10. MAGNESIUM OXIDE [Concomitant]
     Dosage: 0.5 G, 3X/DAY
     Route: 048
  11. RABEPRAZOLE SODIUM [Concomitant]
     Dosage: 10 MG, 1X/DAY
     Route: 048
  12. ACETAMINOPHEN [Concomitant]
     Indication: PAIN
     Dosage: 400 MG, 3X/DAY
     Route: 048
     Dates: start: 20110422
  13. NOVAMIN [Concomitant]
     Dosage: 5 MG, 3X/DAY
     Route: 048
     Dates: start: 20110428
  14. MUCOSTA [Concomitant]
     Dosage: 100 MG, 3X/DAY
     Route: 048
     Dates: start: 20110427
  15. TEMSIROLIMUS [Suspect]
     Dosage: 12.5 MG, UNK
     Route: 042
     Dates: start: 20110422, end: 20110422
  16. ALOSENN [Concomitant]
     Dosage: 0.5 G, 3X/DAY
     Route: 048
  17. NEUROTROPIN [Concomitant]
     Dosage: 8 UNITS TWICE DAILY
     Route: 048
  18. TEMSIROLIMUS [Suspect]
     Indication: RENAL CELL CARCINOMA
     Dosage: 12.5 MG, UNK
     Route: 042
     Dates: start: 20110408, end: 20110408
  19. TEMSIROLIMUS [Suspect]
     Dosage: 12.5 MG, UNK
     Route: 042
     Dates: start: 20110506, end: 20110506
  20. CHLOR-TRIMETON [Concomitant]
     Dosage: 10 MG, 1X/DAY
     Route: 042
     Dates: start: 20110422, end: 20110422
  21. TRAMADOL HYDROCHLORIDE [Concomitant]
     Indication: PAIN
     Dosage: 25 MG, 4X/DAY
     Route: 048
     Dates: start: 20110417

REACTIONS (3)
  - DISEASE PROGRESSION [None]
  - DYSPNOEA [None]
  - RENAL CELL CARCINOMA [None]
